FAERS Safety Report 19083027 (Version 1)
Quarter: 2021Q1

REPORT INFORMATION
  Report Type: Spontaneous
  Country: US (occurrence: US)
  Receive Date: 20210331
  Receipt Date: 20210331
  Transmission Date: 20210420
  Serious: Yes (Other)
  Sender: FDA-Public Use
  Company Number: None

PATIENT
  Age: 69 Year
  Sex: Male

DRUGS (1)
  1. VANCOMYCIN (VANCOMYCIN HCL 1.25GM/VIAL INJ) [Suspect]
     Active Substance: VANCOMYCIN
     Indication: DIABETIC FOOT INFECTION
     Route: 042
     Dates: start: 20201222, end: 20201222

REACTIONS (7)
  - Hyperhidrosis [None]
  - Hypotension [None]
  - Respiratory depression [None]
  - Urticaria [None]
  - Pruritus [None]
  - Blood glucose decreased [None]
  - Dyspnoea [None]

NARRATIVE: CASE EVENT DATE: 20201222
